FAERS Safety Report 13403909 (Version 5)
Quarter: 2019Q1

REPORT INFORMATION
  Report Type: Report from Study
  Country: DE (occurrence: DE)
  Receive Date: 20170405
  Receipt Date: 20190227
  Transmission Date: 20190417
  Serious: Yes (Life-Threatening, Hospitalization, Other)
  Sender: FDA-Public Use
  Company Number: DE-BRISTOL-MYERS SQUIBB COMPANY-BMS-2017-018903

PATIENT
  Age: 60 Year
  Sex: Female

DRUGS (11)
  1. MCP [Concomitant]
     Active Substance: METOCLOPRAMIDE HYDROCHLORIDE
     Indication: MALIGNANT NEOPLASM PROGRESSION
     Dosage: UNK, QD
     Route: 065
     Dates: start: 20170222
  2. NIVOLUMAB [Suspect]
     Active Substance: NIVOLUMAB
     Indication: NON-SMALL CELL LUNG CANCER
     Dosage: 3 MG/KG, Q2WK
     Route: 042
     Dates: start: 20170215, end: 20170329
  3. NOVAMINSULFON [Concomitant]
     Active Substance: METAMIZOLE
     Indication: MALIGNANT NEOPLASM PROGRESSION
     Dosage: 1 TAB, PRN
     Route: 065
     Dates: start: 20170217
  4. ACETYLCYSTEINE. [Concomitant]
     Active Substance: ACETYLCYSTEINE
     Indication: PRODUCT USED FOR UNKNOWN INDICATION
     Dosage: UNK, PRN
     Route: 065
     Dates: start: 201802
  5. ACC                                /00082801/ [Concomitant]
     Active Substance: ACETYLCYSTEINE
     Indication: MALIGNANT NEOPLASM PROGRESSION
     Dosage: UNK, BID
     Route: 065
  6. INNOHEP [Concomitant]
     Active Substance: TINZAPARIN SODIUM
     Indication: PRODUCT USED FOR UNKNOWN INDICATION
     Dosage: UNK
     Route: 065
     Dates: start: 20170301, end: 20170430
  7. PARACODIN                          /00063001/ [Concomitant]
     Indication: MALIGNANT NEOPLASM PROGRESSION
     Dosage: 10 GTT, PRN
     Route: 065
  8. NIVOLUMAB [Suspect]
     Active Substance: NIVOLUMAB
     Indication: PRODUCT USED FOR UNKNOWN INDICATION
     Dosage: 240 MG, Q2WK
     Route: 042
     Dates: start: 20170215
  9. ATOSIL                             /00033002/ [Concomitant]
     Active Substance: PROMETHAZINE HYDROCHLORIDE
     Indication: PRODUCT USED FOR UNKNOWN INDICATION
     Dosage: UNK
     Route: 065
     Dates: start: 20170301
  10. PARACODIN                          /00063001/ [Concomitant]
     Indication: PRODUCT USED FOR UNKNOWN INDICATION
     Dosage: UNK
     Route: 065
  11. METOHEXAL                          /00376902/ [Concomitant]
     Active Substance: METOPROLOL SUCCINATE
     Indication: PRODUCT USED FOR UNKNOWN INDICATION
     Dosage: 1 DF, QD
     Route: 065

REACTIONS (8)
  - Stenosis [Unknown]
  - Dizziness [Recovered/Resolved]
  - Thrombophlebitis [Recovering/Resolving]
  - Abdominal pain [Recovered/Resolved]
  - Oedema peripheral [Recovering/Resolving]
  - Acute myocardial infarction [Recovered/Resolved]
  - Productive cough [Not Recovered/Not Resolved]
  - Nausea [Recovered/Resolved]

NARRATIVE: CASE EVENT DATE: 20170217
